FAERS Safety Report 7945568-3 (Version None)
Quarter: 2011Q4

REPORT INFORMATION
  Report Type: 
  Country: None (occurrence: None)
  Receive Date: 20111129
  Receipt Date: 20111129
  Transmission Date: 20120403
  Serious: Yes (Other)
  Sender: FDA-Public Use
  Company Number: US-PFIZER INC-2011018490

PATIENT
  Age: 55 Year
  Sex: Male

DRUGS (6)
  1. FLUOXETINE [Concomitant]
  2. METRONIDAZOLE [Suspect]
     Dosage: 500 MG, 3X/DAY
  3. OMEPRAZOLE [Concomitant]
  4. LISINOPRIL [Concomitant]
  5. INSULIN GLARGINE [Concomitant]
  6. SULFASALAZINE [Concomitant]
     Dosage: 500 MG, 4X/DAY

REACTIONS (1)
  - ENCEPHALOPATHY [None]
